FAERS Safety Report 18696259 (Version 2)
Quarter: 2021Q1

REPORT INFORMATION
  Report Type: Spontaneous
  Country: US (occurrence: US)
  Receive Date: 20210104
  Receipt Date: 20210105
  Transmission Date: 20210419
  Serious: Yes (Other)
  Sender: FDA-Public Use
  Company Number: US-PFIZER INC-2020515312

PATIENT
  Age: 74 Year
  Sex: Male

DRUGS (1)
  1. DOXYCYCLINE HYCLATE. [Suspect]
     Active Substance: DOXYCYCLINE HYCLATE
     Indication: MEDICAL DEVICE SITE JOINT INFECTION
     Dosage: 100 MG, 2X/DAY

REACTIONS (1)
  - Gastrointestinal injury [Unknown]
